FAERS Safety Report 7347960-7 (Version None)
Quarter: 2011Q1

REPORT INFORMATION
  Report Type: 
  Country: None (occurrence: None)
  Receive Date: 20110311
  Receipt Date: 20110228
  Transmission Date: 20110831
  Serious: Yes (Hospitalization, Other)
  Sender: FDA-Public Use
  Company Number: US-SANOFI-AVENTIS-2011SA012775

PATIENT
  Age: 75 Year
  Sex: Female

DRUGS (2)
  1. PLAVIX [Suspect]
     Route: 048
  2. ACTIVASE [Suspect]
     Indication: TRANSIENT ISCHAEMIC ATTACK
     Route: 040
     Dates: start: 20100701, end: 20100701

REACTIONS (6)
  - RESPIRATORY DISORDER [None]
  - PARALYSIS [None]
  - CEREBROVASCULAR ACCIDENT [None]
  - DYSPHAGIA [None]
  - PNEUMONIA [None]
  - CEREBRAL HAEMORRHAGE [None]
